FAERS Safety Report 18584087 (Version 2)
Quarter: 2020Q4

REPORT INFORMATION
  Report Type: Spontaneous
  Country: BE (occurrence: BE)
  Receive Date: 20201207
  Receipt Date: 20201214
  Transmission Date: 20210114
  Serious: Yes (Hospitalization, Other)
  Sender: FDA-Public Use
  Company Number: BE-AUROBINDO-AUR-APL-2020-059434

PATIENT
  Age: 12 Year
  Sex: Male

DRUGS (9)
  1. QUETIAPINE FILM-COATED TABLET [Suspect]
     Active Substance: QUETIAPINE
     Dosage: GRADUALLY PHASING OUT
     Route: 065
  2. PIPAMPERONE [Concomitant]
     Active Substance: PIPAMPERONE
     Indication: AUTISM SPECTRUM DISORDER
     Dosage: UNK
     Route: 065
  3. METHYLPHENIDATE. [Concomitant]
     Active Substance: METHYLPHENIDATE
     Indication: ATTENTION DEFICIT HYPERACTIVITY DISORDER
     Dosage: UNK
     Route: 065
  4. PROPRANOLOL [Suspect]
     Active Substance: PROPRANOLOL HYDROCHLORIDE
     Indication: HYPERAROUSAL
     Dosage: UNK
     Route: 065
  5. QUETIAPINE FILM-COATED TABLET [Suspect]
     Active Substance: QUETIAPINE
     Indication: ATTENTION DEFICIT HYPERACTIVITY DISORDER
     Dosage: 800 MILLIGRAM, ONCE A DAY
     Route: 048
  6. ARIPIPRAZOLE. [Suspect]
     Active Substance: ARIPIPRAZOLE
     Indication: AUTISM SPECTRUM DISORDER
     Dosage: PHASED OUT ARIPIPRAZOLE FROM 15 MG UNTIL COMPLETE DISCONTINUATION
     Route: 065
  7. ARIPIPRAZOLE. [Suspect]
     Active Substance: ARIPIPRAZOLE
     Dosage: 15 MILLIGRAM
     Route: 065
  8. QUETIAPINE FILM-COATED TABLET [Suspect]
     Active Substance: QUETIAPINE
     Indication: BEHAVIOUR DISORDER
     Dosage: TITRATED UP
     Route: 065
  9. RISPERIDONE. [Concomitant]
     Active Substance: RISPERIDONE
     Indication: AUTISM SPECTRUM DISORDER
     Dosage: UNK
     Route: 065

REACTIONS (7)
  - Agitation [Recovering/Resolving]
  - Withdrawal syndrome [Recovering/Resolving]
  - Loss of personal independence in daily activities [Recovering/Resolving]
  - Choreoathetosis [Recovering/Resolving]
  - Anxiety [Recovering/Resolving]
  - Tardive dyskinesia [Recovering/Resolving]
  - Off label use [Unknown]
